FAERS Safety Report 25059103 (Version 1)
Quarter: 2025Q1

REPORT INFORMATION
  Report Type: Spontaneous
  Country: US (occurrence: None)
  Receive Date: 20250307
  Receipt Date: 20250307
  Transmission Date: 20250409
  Serious: Yes (Death)
  Sender: FDA-CTU
  Company Number: None

PATIENT
  Age: 45 Year
  Sex: Male

DRUGS (22)
  1. TACROLIMUS [Suspect]
     Active Substance: TACROLIMUS
     Indication: Heart transplant
     Dosage: TWICE  DAY ORAL
     Route: 048
     Dates: start: 20250127
  2. MYCOPHENOLIC ACID [Suspect]
     Active Substance: MYCOPHENOLIC ACID
     Indication: Heart transplant
     Dosage: 720 MG TWICE A DAY ORAL ?
     Route: 048
     Dates: start: 20250127
  3. VITAMIN E 180 MG [Concomitant]
     Dates: start: 20250127
  4. AMIODARONE [Concomitant]
     Active Substance: AMIODARONE
     Dates: start: 20250127
  5. ASPIRIN [Concomitant]
     Active Substance: ASPIRIN
     Dates: start: 20250127
  6. ATOVAQUONE 750 MG/5 ML [Concomitant]
     Dates: start: 20250127
  7. CALCIUM CITRATE + D3 [Concomitant]
     Dates: start: 20250127
  8. MINERALS\VITAMINS [Concomitant]
     Active Substance: MINERALS\VITAMINS
     Dates: start: 20250127
  9. FAMOTIDINE [Concomitant]
     Active Substance: FAMOTIDINE
     Dates: start: 20250127
  10. HUMULIN N U-100 KWIKPEN [Concomitant]
     Dates: start: 20250127
  11. INSULIN LISPRO 100 UNIT/ML [Concomitant]
     Dates: start: 20250127
  12. KETOCONAZOLE [Concomitant]
     Active Substance: KETOCONAZOLE
     Dates: start: 20250127
  13. MELATONIN 3 MG [Concomitant]
     Dates: start: 20250127
  14. NYSTATIN 100000 UNITS/ML [Concomitant]
     Dates: start: 20250127
  15. PREDNISONE [Concomitant]
     Active Substance: PREDNISONE
     Dates: start: 20250127
  16. PREDNISONE [Concomitant]
     Active Substance: PREDNISONE
     Dates: start: 20250127
  17. ROSUVASTATIN [Concomitant]
     Active Substance: ROSUVASTATIN
     Dates: start: 20250127
  18. SOFOSBUVIR/VELPTASVIR 400/100 MG [Concomitant]
     Dates: start: 20250127
  19. TRAZODONE [Concomitant]
     Active Substance: TRAZODONE HYDROCHLORIDE
     Dates: start: 20250127
  20. VALGANCICLOVIR 450 MG [Concomitant]
     Dates: start: 20250127
  21. VITAMIN C [Concomitant]
     Active Substance: ASCORBIC ACID
     Dates: start: 20250127
  22. VITAMIN D3 1000 UNIT [Concomitant]
     Dates: start: 20250127

REACTIONS (2)
  - Thrombocytopenia [None]
  - Complications of transplanted heart [None]

NARRATIVE: CASE EVENT DATE: 20250306
